FAERS Safety Report 7006897-3 (Version None)
Quarter: 2010Q3

REPORT INFORMATION
  Report Type: 
  Country: None (occurrence: None)
  Receive Date: 20100922
  Receipt Date: 20100909
  Transmission Date: 20110219
  Serious: Yes (Other)
  Sender: FDA-Public Use
  Company Number: ES-ELI_LILLY_AND_COMPANY-ES201009003102

PATIENT
  Sex: Female
  Weight: 112 kg

DRUGS (4)
  1. FORTEO [Suspect]
     Indication: OSTEOPOROSIS
     Dosage: 20 UG, DAILY (1/D)
     Route: 058
     Dates: start: 20100625
  2. DIOVAN HCT [Concomitant]
     Indication: HYPERTENSION
     Dosage: 80 MG, DAILY (1/D)
     Route: 048
  3. TORASEMIDE [Concomitant]
     Dosage: 10 MG, UNKNOWN
     Route: 048
  4. DOLPRONE [Concomitant]
     Indication: PAIN
     Dosage: 100 MG, 2/D
     Route: 048

REACTIONS (1)
  - THROMBOPHLEBITIS [None]
